FAERS Safety Report 15845180 (Version 3)
Quarter: 2020Q4

REPORT INFORMATION
  Report Type: Report from Study
  Country: None (occurrence: AU)
  Receive Date: 20190119
  Receipt Date: 20201207
  Transmission Date: 20210113
  Serious: Yes (Other)
  Sender: FDA-Public Use
  Company Number: AU-ABBVIE-19K-008-2630580-00

PATIENT

DRUGS (2)
  1. HUMIRA [Suspect]
     Active Substance: ADALIMUMAB
     Indication: CROHN^S DISEASE
     Route: 058
  2. HUMIRA [Suspect]
     Active Substance: ADALIMUMAB
     Dosage: DOSE INCREASED
     Route: 058

REACTIONS (5)
  - Intestinal obstruction [Recovered/Resolved]
  - Therapeutic product effect incomplete [Recovered/Resolved]
  - Therapeutic product effect decreased [Unknown]
  - Crohn^s disease [Unknown]
  - Drug level below therapeutic [Recovered/Resolved]
